FAERS Safety Report 11117641 (Version 1)
Quarter: 2015Q2

REPORT INFORMATION
  Report Type: Spontaneous
  Country: US (occurrence: US)
  Receive Date: 20150517
  Receipt Date: 20150517
  Transmission Date: 20150821
  Serious: Yes (Other)
  Sender: FDA-Public Use
  Company Number: US-UCBSA-2015014736

PATIENT
  Age: 7 Decade
  Sex: Male

DRUGS (5)
  1. OXYCODONE [Concomitant]
     Active Substance: OXYCODONE
     Indication: RESTLESS LEGS SYNDROME
     Dosage: UNK
  2. HORIZANT [Concomitant]
     Active Substance: GABAPENTIN ENACARBIL
     Dosage: 1200 MG DAILY
     Dates: end: 201504
  3. NEUPRO [Suspect]
     Active Substance: ROTIGOTINE
     Dosage: TAPERED OFF AND THERAPY STOPPED
     Route: 061
  4. NEUPRO [Suspect]
     Active Substance: ROTIGOTINE
     Indication: RESTLESS LEGS SYNDROME
     Dosage: UNK
     Route: 061
  5. HORIZANT [Concomitant]
     Active Substance: GABAPENTIN ENACARBIL
     Indication: RESTLESS LEGS SYNDROME
     Dosage: 600 MG DAILY

REACTIONS (3)
  - Suicidal ideation [Unknown]
  - Depression [Unknown]
  - Restless legs syndrome [Unknown]
